FAERS Safety Report 6660692-3 (Version None)
Quarter: 2010Q1

REPORT INFORMATION
  Report Type: 
  Country: None (occurrence: None)
  Receive Date: 20100331
  Receipt Date: 20100319
  Transmission Date: 20100710
  Serious: Yes (Hospitalization)
  Sender: FDA-Public Use
  Company Number: GB-WYE-H14311510

PATIENT
  Age: 80 Year
  Sex: Male

DRUGS (19)
  1. AMIODARONE HCL [Suspect]
     Indication: SUPRAVENTRICULAR TACHYCARDIA
     Dosage: UNSPECIFIED
     Route: 048
     Dates: start: 20100121, end: 20100223
  2. BISOPROLOL FUMARATE [Concomitant]
  3. CLOPIDOGREL [Concomitant]
  4. AMPICILLIN SODIUM/SULBACTAM SODIUM [Concomitant]
  5. DICLOFENAC [Concomitant]
  6. HEPARIN SODIUM [Concomitant]
  7. GAVISCON [Concomitant]
  8. GLICLAZIDE [Concomitant]
  9. GLYCERYL TRINITRATE [Concomitant]
  10. HYDROCORTISONE [Concomitant]
  11. LISINOPRIL [Concomitant]
  12. METFORMIN HCL [Concomitant]
  13. PARACETAMOL [Concomitant]
  14. PRAVASTATIN [Concomitant]
  15. SITAGLIPTIN [Concomitant]
  16. OMEPRAZOLE [Suspect]
     Indication: BARRETT'S OESOPHAGUS
     Route: 048
     Dates: start: 20100120, end: 20100223
  17. OMEPRAZOLE [Suspect]
     Indication: GASTRIC ULCER
  18. OMEPRAZOLE [Suspect]
     Indication: UPPER GASTROINTESTINAL HAEMORRHAGE
  19. ACETYLSALICYLIC ACID [Concomitant]

REACTIONS (1)
  - IDIOPATHIC THROMBOCYTOPENIC PURPURA [None]
